FAERS Safety Report 19212323 (Version 2)
Quarter: 2021Q2

REPORT INFORMATION
  Report Type: Spontaneous
  Country: PK (occurrence: PK)
  Receive Date: 20210504
  Receipt Date: 20210513
  Transmission Date: 20210717
  Serious: Yes (Death)
  Sender: FDA-Public Use
  Company Number: PK-NOVOPROD-808698

PATIENT
  Age: 80 Year
  Sex: Male

DRUGS (1)
  1. NOVOMIX 30 FLEXPEN [Suspect]
     Active Substance: INSULIN ASPART
     Indication: TYPE 2 DIABETES MELLITUS
     Dosage: 30+30
     Route: 058
     Dates: start: 20180805, end: 20210216

REACTIONS (1)
  - Localised infection [Fatal]

NARRATIVE: CASE EVENT DATE: 20210101
